FAERS Safety Report 7183067 (Version 5)
Quarter: 2013Q4

REPORT INFORMATION
  Report Type: Spontaneous
  Country: US (occurrence: US)
  Receive Date: 20091120
  Receipt Date: 20131218
  Transmission Date: 20140711
  Serious: No
  Sender: FDA-Public Use
  Company Number: US-ASTRAZENECA-2009SE26693

PATIENT
  Age: 66 Year
  Sex: Female
  Weight: 73.5 kg

DRUGS (10)
  1. NEXIUM [Suspect]
     Indication: GASTROOESOPHAGEAL REFLUX DISEASE
     Route: 048
  2. CRESTOR [Suspect]
     Indication: BLOOD CHOLESTEROL ABNORMAL
     Route: 048
  3. CRESTOR [Suspect]
     Indication: BLOOD CHOLESTEROL ABNORMAL
     Route: 048
  4. PLAVIX [Concomitant]
     Indication: CARDIAC DISORDER
  5. LASIX [Concomitant]
  6. HYDROCODONE [Concomitant]
     Indication: PAIN
  7. VASOTEC [Concomitant]
     Indication: BLOOD PRESSURE ABNORMAL
  8. XANAX [Concomitant]
     Indication: ANXIETY
  9. FISH OIL [Concomitant]
  10. SOMA [Concomitant]
     Indication: MUSCLE SPASMS

REACTIONS (9)
  - Cardiac disorder [Unknown]
  - Adverse event [Unknown]
  - Panic attack [Unknown]
  - Anxiety [Unknown]
  - Malaise [Unknown]
  - Neck pain [Unknown]
  - Depressed mood [Unknown]
  - Muscle spasms [Unknown]
  - Drug dose omission [Unknown]
